FAERS Safety Report 19683352 (Version 1)
Quarter: 2021Q3

REPORT INFORMATION
  Report Type: Spontaneous
  Country: US (occurrence: US)
  Receive Date: 20210810
  Receipt Date: 20210810
  Transmission Date: 20211014
  Serious: No
  Sender: FDA-Public Use
  Company Number: US-009507513-2107USA007629

PATIENT
  Sex: Female

DRUGS (4)
  1. TOPOTECAN [Concomitant]
     Active Substance: TOPOTECAN HYDROCHLORIDE
  2. IPILIMUMAB;NIVOLUMAB [Concomitant]
  3. KEYTRUDA [Suspect]
     Active Substance: PEMBROLIZUMAB
     Indication: ADENOCARCINOMA OF THE CERVIX
     Dosage: UNK
     Dates: start: 201708
  4. VINORELBINE [Concomitant]
     Active Substance: VINORELBINE TARTRATE

REACTIONS (2)
  - Therapy non-responder [Unknown]
  - Product use in unapproved indication [Unknown]
